FAERS Safety Report 4951390-2 (Version None)
Quarter: 2006Q1

REPORT INFORMATION
  Report Type: 
  Country: None (occurrence: None)
  Receive Date: 20060323
  Receipt Date: 20060313
  Transmission Date: 20060701
  Serious: Yes (Other)
  Sender: FDA-Public Use
  Company Number: BR-JNJFOC-20060304376

PATIENT
  Sex: Female
  Weight: 60 kg

DRUGS (4)
  1. ACETAMINOPHEN W/ CODEINE [Suspect]
     Indication: SUICIDE ATTEMPT
  2. DIAZEPAM [Suspect]
     Indication: SUICIDE ATTEMPT
  3. PHENOBARBITAL TAB [Suspect]
     Indication: SUICIDE ATTEMPT
  4. VALPROATE SODIUM [Suspect]
     Indication: SUICIDE ATTEMPT

REACTIONS (3)
  - HEADACHE [None]
  - SOMNOLENCE [None]
  - SUICIDE ATTEMPT [None]
